FAERS Safety Report 17371393 (Version 1)
Quarter: 2020Q1

REPORT INFORMATION
  Report Type: Spontaneous
  Country: FI (occurrence: FI)
  Receive Date: 20200205
  Receipt Date: 20200205
  Transmission Date: 20200409
  Serious: Yes (Hospitalization, Other)
  Sender: FDA-Public Use
  Company Number: FI-BRISTOL-MYERS SQUIBB COMPANY-BMS-2020-008106

PATIENT
  Age: 70 Year
  Sex: Male

DRUGS (2)
  1. PROTHROMBIN COMPLEX CONCENTRATE NOS [Suspect]
     Active Substance: COAGULATION FACTOR IX HUMAN\COAGULATION FACTOR VII HUMAN\COAGULATION FACTOR X HUMAN\PROTHROMBIN
     Indication: SUBDURAL HAEMATOMA
     Dosage: UNK
     Route: 065
     Dates: start: 201912
  2. ELIQUIS [Suspect]
     Active Substance: APIXABAN
     Indication: THROMBOPHLEBITIS SUPERFICIAL
     Dosage: 5 MILLIGRAM, BID
     Route: 065

REACTIONS (5)
  - Head injury [Unknown]
  - Fall [Unknown]
  - Post procedural haemorrhage [Recovered/Resolved]
  - Intentional product use issue [Unknown]
  - Subdural haematoma [Unknown]

NARRATIVE: CASE EVENT DATE: 201912
